FAERS Safety Report 7807939 (Version 4)
Quarter: 2017Q3

REPORT INFORMATION
  Report Type: Report from Study
  Country: US (occurrence: US)
  Receive Date: 20110210
  Receipt Date: 20170927
  Transmission Date: 20171128
  Serious: Yes (Other)
  Sender: FDA-Public Use
  Company Number: US-ROCHE-756316

PATIENT

DRUGS (3)
  1. CAPECITABINE. [Suspect]
     Active Substance: CAPECITABINE
     Indication: RECTAL CANCER
     Dosage: DAYS 1-14 AND 22-35
     Route: 065
  2. OXALIPLATIN. [Suspect]
     Active Substance: OXALIPLATIN
     Indication: RECTAL CANCER
     Dosage: WEEKS 1, 2, 4 AND 5
     Route: 065
  3. CAPECITABINE. [Suspect]
     Active Substance: CAPECITABINE
     Dosage: MODIFIED DOSE
     Route: 065

REACTIONS (13)
  - Cardiovascular disorder [Unknown]
  - Metabolic disorder [Unknown]
  - Haemorrhagic disorder [Unknown]
  - Blood disorder [Unknown]
  - Lymphatic disorder [Unknown]
  - Febrile neutropenia [Unknown]
  - Pain [Unknown]
  - Coagulopathy [Unknown]
  - Musculoskeletal disorder [Unknown]
  - Ill-defined disorder [Unknown]
  - Skin disorder [Unknown]
  - Gastrointestinal disorder [Unknown]
  - Nervous system disorder [Unknown]
